FAERS Safety Report 14333651 (Version 2)
Quarter: 2018Q1

REPORT INFORMATION
  Report Type: Report from Study
  Country: JP (occurrence: JP)
  Receive Date: 20171228
  Receipt Date: 20180209
  Transmission Date: 20180509
  Serious: Yes (Death)
  Sender: FDA-Public Use
  Company Number: JP-ASTRAZENECA-2017SF33067

PATIENT
  Age: 31231 Day
  Sex: Male

DRUGS (5)
  1. ZETIA [Concomitant]
     Active Substance: EZETIMIBE
     Route: 048
  2. MEPTIN AIR [Concomitant]
     Active Substance: PROCATEROL HYDROCHLORIDE
     Dosage: AS REQUIRED
     Route: 055
     Dates: start: 20161124
  3. NOVORAPID [Concomitant]
     Active Substance: INSULIN ASPART
     Route: 059
  4. EKLIRA GENUAIR [Suspect]
     Active Substance: ACLIDINIUM BROMIDE
     Indication: CHRONIC OBSTRUCTIVE PULMONARY DISEASE
     Route: 055
     Dates: start: 20161013
  5. TRAZENTA [Concomitant]
     Active Substance: LINAGLIPTIN
     Route: 048

REACTIONS (1)
  - Death [Fatal]

NARRATIVE: CASE EVENT DATE: 20170401
